FAERS Safety Report 26097236 (Version 1)
Quarter: 2025Q4

REPORT INFORMATION
  Report Type: Spontaneous
  Country: EU (occurrence: EU)
  Receive Date: 20251127
  Receipt Date: 20251127
  Transmission Date: 20260118
  Serious: Yes (Life-Threatening, Hospitalization, Other)
  Sender: LEGACY PHARMACEUTICAL PACKAGING
  Company Number: EU-LEGACY PHARMA INC. SEZC-LGP202511-000380

PATIENT
  Age: 75 Year
  Sex: Male

DRUGS (2)
  1. ESBRIET [Suspect]
     Active Substance: PIRFENIDONE
     Indication: Idiopathic pulmonary fibrosis
     Dosage: 267 MILLIGRAM, TID
     Route: 048
     Dates: start: 20251016, end: 20251023
  2. ORENCIA [Suspect]
     Active Substance: ABATACEPT
     Indication: Rheumatoid arthritis
     Dosage: 125 UNK, WEEKLY
     Route: 058
     Dates: start: 2025

REACTIONS (3)
  - Pancreatitis [Recovered/Resolved]
  - Sepsis [Recovered/Resolved]
  - Drug interaction [Recovered/Resolved]

NARRATIVE: CASE EVENT DATE: 20251024
